FAERS Safety Report 11231376 (Version 1)
Quarter: 2015Q3

REPORT INFORMATION
  Report Type: Spontaneous
  Country: GR (occurrence: GR)
  Receive Date: 20150701
  Receipt Date: 20150701
  Transmission Date: 20151125
  Serious: Yes (Other)
  Sender: FDA-Public Use
  Company Number: GR-009507513-1506GRC011985

PATIENT
  Age: 76 Year
  Sex: Male

DRUGS (2)
  1. EZETROL [Suspect]
     Active Substance: EZETIMIBE
     Indication: DYSLIPIDAEMIA
     Dosage: 1 TABLET EVERY DAY (10 MG, QD)
     Route: 048
     Dates: start: 2007
  2. STATINAL [Concomitant]
     Dosage: UNK

REACTIONS (1)
  - Vascular graft [Unknown]

NARRATIVE: CASE EVENT DATE: 2011
